FAERS Safety Report 15183479 (Version 1)
Quarter: 2018Q3

REPORT INFORMATION
  Report Type: Report from Study
  Country: None (occurrence: US)
  Receive Date: 20180723
  Receipt Date: 20180723
  Transmission Date: 20181010
  Serious: Yes (Hospitalization, Other)
  Sender: FDA-Public Use
  Company Number: US-BAUSCH-BL-2018-019768

PATIENT
  Sex: Female

DRUGS (1)
  1. XIFAXAN [Suspect]
     Active Substance: RIFAXIMIN
     Indication: LIVER DISORDER
     Dosage: DOSE OF 2 OF 550MG TABLETS ONCE A DAY.
     Route: 048
     Dates: start: 20171228

REACTIONS (4)
  - Hospitalisation [Unknown]
  - Fall [Unknown]
  - Drug dose omission [Unknown]
  - Upper limb fracture [Unknown]
